FAERS Safety Report 17449127 (Version 1)
Quarter: 2020Q1

REPORT INFORMATION
  Report Type: Spontaneous
  Country: US (occurrence: US)
  Receive Date: 20200224
  Receipt Date: 20200224
  Transmission Date: 20200409
  Serious: Yes (Other)
  Sender: FDA-Public Use
  Company Number: US-ASTELLAS-2020US005644

PATIENT
  Age: 60 Year
  Sex: Female

DRUGS (6)
  1. DIAZEPAM. [Concomitant]
     Active Substance: DIAZEPAM
     Indication: STIFF PERSON SYNDROME
     Dosage: UNK UNK, UNKNOWN FREQ (EVERYDAY)
     Route: 048
  2. LEXISCAN [Suspect]
     Active Substance: REGADENOSON
     Indication: CARDIAC STRESS TEST
     Dosage: 0.4 MG/5 ML (0.08 MG/ML), TOTAL DOSE (ONE DOSE)
     Route: 042
     Dates: start: 20200210, end: 20200210
  3. BACLOFEN. [Concomitant]
     Active Substance: BACLOFEN
     Indication: STIFF PERSON SYNDROME
     Dosage: UNK UNK, UNKNOWN FREQ (EVERYDAY)
     Route: 048
  4. LEXISCAN [Suspect]
     Active Substance: REGADENOSON
     Indication: CARDIAC STRESS TEST
     Dosage: 0.4 MG/5 ML (0.08 MG/ML), TOTAL DOSE (ONE DOSE)
     Route: 042
     Dates: start: 20200210, end: 20200210
  5. LEXISCAN [Suspect]
     Active Substance: REGADENOSON
     Indication: CARDIAC STRESS TEST
     Dosage: 0.4 MG/5 ML (0.08 MG/ML), TOTAL DOSE (ONE DOSE)
     Route: 042
     Dates: start: 20200210, end: 20200210
  6. LEXISCAN [Suspect]
     Active Substance: REGADENOSON
     Indication: CARDIAC STRESS TEST
     Dosage: 0.4 MG/5 ML (0.08 MG/ML), TOTAL DOSE (ONE DOSE)
     Route: 042
     Dates: start: 20200210, end: 20200210

REACTIONS (4)
  - Muscle spasms [Recovered/Resolved]
  - Dyspnoea [Unknown]
  - Myoclonus [Recovered/Resolved]
  - Hypertension [Unknown]

NARRATIVE: CASE EVENT DATE: 20200210
